FAERS Safety Report 7076400-0 (Version None)
Quarter: 2010Q4

REPORT INFORMATION
  Report Type: 
  Country: None (occurrence: None)
  Receive Date: 20101101
  Receipt Date: 20101026
  Transmission Date: 20110411
  Serious: Yes (Death)
  Sender: FDA-Public Use
  Company Number: US-US-EMD SERONO, INC.-7024653

PATIENT
  Sex: Male

DRUGS (1)
  1. REBIF [Suspect]
     Route: 058
     Dates: start: 20070409, end: 20101006

REACTIONS (1)
  - ADENOCARCINOMA [None]
